FAERS Safety Report 21546361 (Version 1)
Quarter: 2022Q4

REPORT INFORMATION
  Report Type: Report from Study
  Country: US (occurrence: US)
  Receive Date: 20221103
  Receipt Date: 20221103
  Transmission Date: 20230113
  Serious: No
  Sender: FDA-Public Use
  Company Number: US-ABBVIE-22K-163-4414478-00

PATIENT
  Sex: Male

DRUGS (6)
  1. SKYRIZI [Suspect]
     Active Substance: RISANKIZUMAB-RZAA
     Indication: Psoriasis
     Route: 058
  2. SKYRIZI [Suspect]
     Active Substance: RISANKIZUMAB-RZAA
     Route: 058
     Dates: start: 20220217, end: 2022
  3. SKYRIZI [Suspect]
     Active Substance: RISANKIZUMAB-RZAA
     Route: 058
     Dates: start: 20220609
  4. Moderna [Concomitant]
     Indication: COVID-19 immunisation
     Dosage: ONE, ONE, ONCE 1ST DOSE
     Route: 030
     Dates: start: 20210325, end: 20210325
  5. Moderna [Concomitant]
     Indication: COVID-19 immunisation
     Dosage: ONE, ONE, ONCE 2ND DOSE
     Route: 030
     Dates: start: 20210424, end: 20210424
  6. Moderna [Concomitant]
     Indication: COVID-19 immunisation
     Dosage: ONE, ONE, ONCE BOOSTER DOSE
     Route: 030
     Dates: start: 20210412, end: 20210412

REACTIONS (5)
  - Anxiety [Unknown]
  - Psoriasis [Not Recovered/Not Resolved]
  - Stress at work [Unknown]
  - Sinusitis [Recovered/Resolved]
  - Sinusitis [Recovered/Resolved]

NARRATIVE: CASE EVENT DATE: 20220101
